FAERS Safety Report 13016658 (Version 3)
Quarter: 2017Q1

REPORT INFORMATION
  Report Type: Spontaneous
  Country: US (occurrence: US)
  Receive Date: 20161212
  Receipt Date: 20170330
  Transmission Date: 20170428
  Serious: Yes (Other)
  Sender: FDA-Public Use
  Company Number: US-JNJFOC-20161209736

PATIENT
  Sex: Male

DRUGS (1)
  1. LEVAQUIN [Suspect]
     Active Substance: LEVOFLOXACIN
     Indication: PRODUCT USED FOR UNKNOWN INDICATION
     Route: 048
     Dates: start: 2009

REACTIONS (7)
  - Visual impairment [Unknown]
  - Neuropathy peripheral [Unknown]
  - Neuropsychiatric symptoms [Unknown]
  - Hypoacusis [Unknown]
  - Musculoskeletal injury [Unknown]
  - Skin injury [Unknown]
  - Cardiovascular disorder [Unknown]

NARRATIVE: CASE EVENT DATE: 2010
